FAERS Safety Report 7004837-4 (Version None)
Quarter: 2010Q3

REPORT INFORMATION
  Report Type: 
  Country: None (occurrence: None)
  Receive Date: 20100921
  Receipt Date: 20100920
  Transmission Date: 20110219
  Serious: Yes (Hospitalization, Other)
  Sender: FDA-Public Use
  Company Number: GB-TEVA-247885ISR

PATIENT
  Age: 1 Year

DRUGS (3)
  1. VINCRISTINE [Suspect]
  2. ETOPOSIDE [Suspect]
  3. CYCLOPHOSPHAMIDE [Suspect]

REACTIONS (1)
  - PNEUMOCOCCAL INFECTION [None]
